FAERS Safety Report 5161026-6 (Version None)
Quarter: 2006Q4

REPORT INFORMATION
  Report Type: 
  Country: None (occurrence: None)
  Receive Date: 20061121
  Receipt Date: 20061103
  Transmission Date: 20070319
  Serious: Yes (Other)
  Sender: FDA-Public Use
  Company Number: 2006134096

PATIENT
  Age: 79 Year
  Sex: Male

DRUGS (3)
  1. HALCION [Suspect]
     Indication: SLEEP DISORDER
     Dosage: 0.25 MG (0.25 MG, 1 IN 1 D), ORAL
     Route: 048
     Dates: start: 19860101
  2. ALPRAZOLAM [Concomitant]
  3. TYLENOL [Concomitant]

REACTIONS (3)
  - DRUG DEPENDENCE [None]
  - DRUG EFFECT DECREASED [None]
  - INITIAL INSOMNIA [None]
